FAERS Safety Report 15998632 (Version 1)
Quarter: 2019Q1

REPORT INFORMATION
  Report Type: Report from Study
  Country: GB (occurrence: GB)
  Receive Date: 20190223
  Receipt Date: 20190223
  Transmission Date: 20190418
  Serious: Yes (Hospitalization, Other)
  Sender: FDA-Public Use
  Company Number: GB-ACCORD-108223

PATIENT
  Age: 76 Year
  Sex: Female
  Weight: 72.6 kg

DRUGS (27)
  1. PENTHROX [Suspect]
     Active Substance: METHOXYFLURANE
     Indication: PAIN
     Dosage: 6-10 PUFFS 99.9% METHOXYFLURANE AT 18:30 AND AT 19:45
     Route: 055
     Dates: start: 20180312, end: 20180312
  2. DALTEPARIN [Concomitant]
     Active Substance: DALTEPARIN
     Indication: PRODUCT USED FOR UNKNOWN INDICATION
     Dosage: UNITS (UNKNOWN, 1 IN 1 DAY)
     Route: 058
     Dates: start: 20180312, end: 20180322
  3. LISINOPRIL. [Suspect]
     Active Substance: LISINOPRIL
     Indication: PRODUCT USED FOR UNKNOWN INDICATION
     Dosage: 2.5 MG, DAILY
     Route: 048
     Dates: start: 20180419, end: 20180419
  4. AMITRIPTYLINE [Concomitant]
     Active Substance: AMITRIPTYLINE
     Indication: PRODUCT USED FOR UNKNOWN INDICATION
     Dosage: 50 MG, DAILY, ALSO RECEIVED 50 MG FROM17-MAR-2018 TO 28-MAR-2018
     Route: 048
     Dates: start: 20180312, end: 20180313
  5. PROPOFOL. [Concomitant]
     Active Substance: PROPOFOL
     Indication: SEDATION
     Dosage: ALSO RECEIVED 10 MG FROM 12-MAR-2018 TO 12-MAR-2018 FOR TRAUMA
  6. CYCLIZINE [Concomitant]
     Active Substance: CYCLIZINE
     Indication: VOMITING
     Dosage: ALSO RECEIVED 50 MG FOR NAUSEA FROM 13-MAR-2018 TO 14-MAR-2018
  7. METARAMINOL [Concomitant]
     Active Substance: METARAMINOL
     Indication: PRODUCT USED FOR UNKNOWN INDICATION
     Dosage: 0.5 MG, PRN
     Route: 042
     Dates: start: 20180313, end: 20180313
  8. MACROGOL/MACROGOL STEARATE [Concomitant]
     Indication: PRODUCT USED FOR UNKNOWN INDICATION
     Dosage: 1 SACHET, BID
     Route: 048
     Dates: start: 20180313, end: 20180328
  9. LEVOBUPIVACAINE/LEVOBUPIVACAINE HYDROCHLORIDE [Concomitant]
     Indication: PRODUCT USED FOR UNKNOWN INDICATION
     Dosage: UNK, PRN
     Route: 065
     Dates: start: 20180313, end: 20180313
  10. AMITRIPTYLINE [Concomitant]
     Active Substance: AMITRIPTYLINE
     Dosage: 50 MG, DAILY
     Route: 048
     Dates: start: 20180317, end: 20180328
  11. TRANEXAMIC ACID. [Concomitant]
     Active Substance: TRANEXAMIC ACID
     Indication: PRODUCT USED FOR UNKNOWN INDICATION
     Dosage: 1 G, PRN
     Route: 065
     Dates: start: 20180313, end: 20180313
  12. PARACETAMOL [Concomitant]
     Active Substance: ACETAMINOPHEN
     Indication: PAIN
     Dosage: UNK (ONCE), ALSO RECEIVED FROM 13-MAR-2018 TO 28-MAR-2018
     Route: 042
     Dates: start: 20180312, end: 20180312
  13. LISINOPRIL. [Suspect]
     Active Substance: LISINOPRIL
     Indication: PRODUCT USED FOR UNKNOWN INDICATION
     Dosage: 10 MG, DAILY
     Route: 048
     Dates: start: 20180314, end: 20180326
  14. IOHEXOL [Concomitant]
     Active Substance: IOHEXOL
     Indication: PRODUCT USED FOR UNKNOWN INDICATION
     Dosage: 70 ML, ONCE
     Route: 042
     Dates: start: 20180319, end: 20180319
  15. NALOXONE [Concomitant]
     Active Substance: NALOXONE
     Indication: PRODUCT USED FOR UNKNOWN INDICATION
     Dosage: 100 MCG, PRN
     Route: 042
     Dates: start: 20180313, end: 20180314
  16. SODIUM LACTATE. [Concomitant]
     Active Substance: SODIUM LACTATE
     Dosage: 125 ML/HR CONTINUOUS INFUSION (125, ONCE), ALSO RECEIVED 12-MAR-2018 TO17-MAR-2018
     Route: 042
     Dates: start: 20180314, end: 20180314
  17. LISINOPRIL. [Suspect]
     Active Substance: LISINOPRIL
     Indication: PRODUCT USED FOR UNKNOWN INDICATION
     Dosage: 2.5 MG, DAILY, ALSO RECEIVED 10 MG FROM 14-MAR-2018 TO 26-MAR-2018
     Route: 048
     Dates: start: 20180326, end: 20180328
  18. SODIUM CHLORIDE. [Concomitant]
     Active Substance: SODIUM CHLORIDE
     Indication: PRODUCT USED FOR UNKNOWN INDICATION
     Dosage: 1000 ML, ONCE
     Route: 042
     Dates: start: 20180317, end: 20180319
  19. ANASTROZOLE. [Concomitant]
     Active Substance: ANASTROZOLE
     Indication: PRODUCT USED FOR UNKNOWN INDICATION
     Dosage: UNK, DAILY
     Route: 048
     Dates: start: 20180312, end: 20180328
  20. MORPHINE [Concomitant]
     Active Substance: MORPHINE
     Indication: PRODUCT USED FOR UNKNOWN INDICATION
     Dosage: UNK,ALSO RECEIVED 0.5 MG FROM 12-MAR-2018 TO 13-MAR-2018,12-MAR-2018 TO 15-MAR-2018
     Route: 042
     Dates: start: 20180313, end: 20180313
  21. SODIUM LACTATE. [Concomitant]
     Active Substance: SODIUM LACTATE
     Indication: PRODUCT USED FOR UNKNOWN INDICATION
     Dosage: UNK
     Route: 042
     Dates: start: 20180312, end: 20180317
  22. GENTAMICIN. [Suspect]
     Active Substance: GENTAMICIN
     Indication: PRODUCT USED FOR UNKNOWN INDICATION
     Dosage: 120 MG, PRN
     Route: 065
     Dates: start: 20180313, end: 20180313
  23. FENTANYL. [Concomitant]
     Active Substance: FENTANYL
     Indication: PRODUCT USED FOR UNKNOWN INDICATION
     Dosage: 25-50 MCG, PRN
     Route: 042
     Dates: start: 20180313, end: 20180313
  24. SODIUM LACTATE. [Concomitant]
     Active Substance: SODIUM LACTATE
     Dosage: 100 ML/HR CONTINUOUS INFUSION (100, ONCE)
     Route: 042
     Dates: start: 20180313, end: 20180314
  25. VANCOMYCIN [Suspect]
     Active Substance: VANCOMYCIN
     Indication: PRODUCT USED FOR UNKNOWN INDICATION
     Dosage: IN SODIUM CHLORIDE 0.9% 250 ML INFUSION (1000 MG, 1 IN 24 HOURS)
     Route: 065
     Dates: start: 20180314, end: 20180315
  26. VANCOMYCIN [Suspect]
     Active Substance: VANCOMYCIN
     Indication: INFECTION
     Dosage: IN SODIUM CHLORIDE 0.9% 50 ML INFUSION (1000 MG, AS REQUIRED),
     Route: 065
     Dates: start: 20180313, end: 20180313
  27. MORPHINE SULFATE. [Concomitant]
     Active Substance: MORPHINE SULFATE
     Dosage: 0.5-2 MG (AS REQUIRED)
     Route: 042
     Dates: start: 20180312, end: 20180313

REACTIONS (2)
  - Pulmonary embolism [Recovering/Resolving]
  - Acute kidney injury [Recovered/Resolved]

NARRATIVE: CASE EVENT DATE: 20180314
